FAERS Safety Report 22218075 (Version 1)
Quarter: 2023Q2

REPORT INFORMATION
  Report Type: Spontaneous
  Country: US (occurrence: None)
  Receive Date: 20230414
  Receipt Date: 20230414
  Transmission Date: 20230721
  Serious: Yes (Hospitalization)
  Sender: FDA-Public Use
  Company Number: None

PATIENT
  Sex: Female

DRUGS (1)
  1. DIMETHYL FUMARATE [Suspect]
     Active Substance: DIMETHYL FUMARATE
     Dosage: OTHER QUANTITY : 240;?FREQUENCY : TWICE A DAY;?
     Route: 048

REACTIONS (3)
  - Fall [None]
  - Fractured sacrum [None]
  - Spinal fracture [None]
